FAERS Safety Report 25401565 (Version 4)
Quarter: 2025Q3

REPORT INFORMATION
  Report Type: Report from Study
  Country: EU (occurrence: EU)
  Receive Date: 20250605
  Receipt Date: 20250812
  Transmission Date: 20251021
  Serious: Yes (Other)
  Sender: VIIV
  Company Number: None

PATIENT
  Age: 34 Year
  Sex: Male
  Weight: 66 kg

DRUGS (3)
  1. CABOTEGRAVIR [Suspect]
     Active Substance: CABOTEGRAVIR
     Indication: HIV infection
  2. RILPIVIRINE [Suspect]
     Active Substance: RILPIVIRINE
     Indication: HIV infection
  3. LEVOTHYROXINE [Concomitant]
     Active Substance: LEVOTHYROXINE
     Indication: Product used for unknown indication
     Route: 065

REACTIONS (3)
  - Fatigue [Recovered/Resolved]
  - Injection site pain [Recovered/Resolved]
  - Injection site discomfort [Recovered/Resolved]
